FAERS Safety Report 16696722 (Version 1)
Quarter: 2019Q3

REPORT INFORMATION
  Report Type: Spontaneous
  Country: US (occurrence: US)
  Receive Date: 20190813
  Receipt Date: 20190813
  Transmission Date: 20191004
  Serious: No
  Sender: FDA-Public Use
  Company Number: US-AUROBINDO-AUR-APL-2019-033488

PATIENT

DRUGS (4)
  1. PULMICORT TURBUHALER [Concomitant]
     Active Substance: BUDESONIDE
     Indication: PRODUCT USED FOR UNKNOWN INDICATION
     Dosage: UNK
     Route: 065
  2. LEVOFLOXACIN TABLET [Suspect]
     Active Substance: LEVOFLOXACIN
     Indication: COUGH
     Dosage: 500 MILLIGRAM, 1 DF PER DAY FOR 7 DAYS
     Route: 065
     Dates: start: 20190530
  3. PREDNISONE. [Suspect]
     Active Substance: PREDNISONE
     Indication: PRODUCT USED FOR UNKNOWN INDICATION
     Dosage: UNK
     Route: 065
  4. MONTELUKAST [Concomitant]
     Active Substance: MONTELUKAST SODIUM
     Dosage: 10 MG
     Route: 065

REACTIONS (4)
  - Gait disturbance [Recovering/Resolving]
  - Muscular weakness [Recovering/Resolving]
  - Vertigo [Recovering/Resolving]
  - Condition aggravated [Recovering/Resolving]
